FAERS Safety Report 4665846-3 (Version None)
Quarter: 2005Q2

REPORT INFORMATION
  Report Type: 
  Country: None (occurrence: None)
  Receive Date: 20050519
  Receipt Date: 20050411
  Transmission Date: 20051028
  Serious: No
  Sender: FDA-Public Use
  Company Number: US-GLAXOSMITHKLINE-A0553593A

PATIENT
  Age: 66 Year
  Sex: Male

DRUGS (2)
  1. AVODART [Suspect]
     Dosage: 1CAP PER DAY
     Route: 048
     Dates: start: 20050201
  2. FOSAMAX [Concomitant]

REACTIONS (2)
  - BLADDER PAIN [None]
  - LIBIDO DECREASED [None]
